FAERS Safety Report 19617555 (Version 2)
Quarter: 2021Q3

REPORT INFORMATION
  Report Type: Spontaneous
  Country: PT (occurrence: PT)
  Receive Date: 20210728
  Receipt Date: 20210805
  Transmission Date: 20211014
  Serious: Yes (Hospitalization, Other)
  Sender: FDA-Public Use
  Company Number: PT-AUROBINDO-AUR-APL-2021-032087

PATIENT
  Age: 73 Year
  Sex: Male

DRUGS (1)
  1. TRANEXAMIC ACID. [Suspect]
     Active Substance: TRANEXAMIC ACID
     Indication: SPINAL ANAESTHESIA
     Dosage: UNK
     Route: 037

REACTIONS (5)
  - Partial seizures [Recovered/Resolved]
  - Pain [Recovered/Resolved]
  - Haemodynamic instability [Recovered/Resolved]
  - Medication error [Recovered/Resolved]
  - Myoclonus [Recovered/Resolved]
